FAERS Safety Report 4709198-9 (Version None)
Quarter: 2005Q3

REPORT INFORMATION
  Report Type: 
  Country: None (occurrence: None)
  Receive Date: 20050706
  Receipt Date: 20050623
  Transmission Date: 20060218
  Serious: Yes (Hospitalization)
  Sender: FDA-Public Use
  Company Number: 2005AL002410

PATIENT
  Age: 93 Year
  Sex: Female

DRUGS (5)
  1. SERAX [Suspect]
     Dosage: 10 MG; QD; PO
     Route: 048
  2. EXELON [Suspect]
     Dosage: 3 MG QD; PO
     Route: 048
  3. DOLIPRANE [Concomitant]
  4. LEVOTHYROX [Concomitant]
  5. CALCEOS [Concomitant]

REACTIONS (9)
  - ATRIOVENTRICULAR BLOCK [None]
  - BUNDLE BRANCH BLOCK RIGHT [None]
  - CHEST PAIN [None]
  - EXTRASYSTOLES [None]
  - HYPOTENSION [None]
  - LEUKOCYTOSIS [None]
  - LEUKOCYTURIA [None]
  - MALAISE [None]
  - NITRITE URINE PRESENT [None]
